FAERS Safety Report 24921524 (Version 2)
Quarter: 2025Q2

REPORT INFORMATION
  Report Type: Spontaneous
  Country: JP (occurrence: JP)
  Receive Date: 20250204
  Receipt Date: 20250403
  Transmission Date: 20250716
  Serious: Yes (Hospitalization, Other)
  Sender: BRISTOL MYERS SQUIBB
  Company Number: JP-ONO-2024JP020031

PATIENT
  Sex: Male

DRUGS (3)
  1. OPDIVO [Suspect]
     Active Substance: NIVOLUMAB
     Indication: Gastric cancer
     Route: 041
     Dates: start: 202408, end: 202408
  2. OXALIPLATIN [Suspect]
     Active Substance: OXALIPLATIN
     Indication: Gastric cancer
     Route: 041
     Dates: start: 202408
  3. GIMERACIL\OTERACIL\TEGAFUR [Suspect]
     Active Substance: GIMERACIL\OTERACIL POTASSIUM\TEGAFUR
     Indication: Gastric cancer
     Route: 048
     Dates: start: 202408

REACTIONS (5)
  - Pyrexia [Recovering/Resolving]
  - Hypothyroidism [Recovering/Resolving]
  - Penile necrosis [Not Recovered/Not Resolved]
  - Blood creatinine increased [Unknown]
  - Immune-mediated renal disorder [Not Recovered/Not Resolved]

NARRATIVE: CASE EVENT DATE: 20240901
